FAERS Safety Report 16318462 (Version 1)
Quarter: 2019Q2

REPORT INFORMATION
  Report Type: Spontaneous
  Country: SE (occurrence: SE)
  Receive Date: 20190516
  Receipt Date: 20190516
  Transmission Date: 20190711
  Serious: Yes (Other)
  Sender: FDA-Public Use
  Company Number: SE-AMGEN-SWESP2019073141

PATIENT
  Age: 79 Year
  Sex: Female

DRUGS (4)
  1. LEVAXIN [Concomitant]
     Active Substance: LEVOTHYROXINE SODIUM
  2. PROLIA [Suspect]
     Active Substance: DENOSUMAB
     Indication: OSTEOPOROSIS
     Dosage: UNK UNK, Q6MO
     Route: 065
  3. WARAN [Concomitant]
     Active Substance: WARFARIN SODIUM
  4. ASACOL [Concomitant]
     Active Substance: MESALAMINE
     Indication: COLITIS

REACTIONS (1)
  - Ear infection fungal [Unknown]
